FAERS Safety Report 9298379 (Version 2)
Quarter: 2013Q2

REPORT INFORMATION
  Report Type: Spontaneous
  Country: US (occurrence: US)
  Receive Date: 20130520
  Receipt Date: 20130620
  Transmission Date: 20140414
  Serious: No
  Sender: FDA-Public Use
  Company Number: US-PFIZER INC-2013151260

PATIENT
  Sex: Female
  Weight: 77.1 kg

DRUGS (9)
  1. ACCURETIC [Suspect]
     Indication: HYPERTENSION
     Dosage: UNK, 2X/DAY
     Dates: start: 2006, end: 2013
  2. CADUET [Suspect]
     Indication: HEART RATE ABNORMAL
     Dosage: UNK, 1X/DAY
     Dates: start: 2009, end: 2013
  3. METOPROLOL TARTRATE [Suspect]
     Indication: RESPIRATORY DISORDER
     Dosage: 150MG DAILY
  4. NITROSTAT [Suspect]
     Indication: CHEST PAIN
     Dosage: UNK, AS NEEDED
     Dates: end: 2013
  5. KLORCON [Concomitant]
     Indication: BLOOD POTASSIUM DECREASED
     Dosage: 30 MG, 1X/DAY
  6. ENALAPRIL [Concomitant]
     Indication: HYPERTENSION
     Dosage: 20 MG, 2X/DAY
  7. VITAMIN D [Concomitant]
     Indication: SYSTEMIC LUPUS ERYTHEMATOSUS
     Dosage: UNK
  8. TYLENOL [Concomitant]
     Indication: PAIN
     Dosage: UNK, 1X/DAY
  9. HYDROCHLOROTHIAZIDE [Concomitant]
     Indication: DIURETIC THERAPY
     Dosage: 25 MG, 1X/DAY

REACTIONS (4)
  - Off label use [Unknown]
  - Cardiac disorder [Unknown]
  - Heart rate increased [Unknown]
  - Dyspnoea [Not Recovered/Not Resolved]
